FAERS Safety Report 7766310-5 (Version None)
Quarter: 2011Q3

REPORT INFORMATION
  Report Type: 
  Country: None (occurrence: None)
  Receive Date: 20110922
  Receipt Date: 20081226
  Transmission Date: 20111222
  Serious: No
  Sender: FDA-Public Use
  Company Number: US-BIOGENIDEC-2008BI035058

PATIENT
  Sex: Female

DRUGS (1)
  1. TYSABRI [Suspect]
     Indication: MULTIPLE SCLEROSIS
     Route: 042
     Dates: start: 20071211, end: 20080918

REACTIONS (10)
  - SNEEZING [None]
  - AMNESIA [None]
  - INFUSION RELATED REACTION [None]
  - DRUG SPECIFIC ANTIBODY PRESENT [None]
  - SPEECH DISORDER [None]
  - ARTHRALGIA [None]
  - HYPERSENSITIVITY [None]
  - COUGH [None]
  - EYE SWELLING [None]
  - HYPOAESTHESIA [None]
